FAERS Safety Report 7489940-7 (Version None)
Quarter: 2011Q2

REPORT INFORMATION
  Report Type: 
  Country: None (occurrence: None)
  Receive Date: 20110510
  Receipt Date: 20110427
  Transmission Date: 20111010
  Serious: Yes (Hospitalization)
  Sender: FDA-Public Use
  Company Number: 032075

PATIENT
  Age: 37 Year
  Sex: Male

DRUGS (3)
  1. ISOSORBIDE MONONITRATE [Suspect]
     Dosage: (40 MG BID)
  2. ASPIRIN [Concomitant]
  3. METOPROLOL TARTRATE [Concomitant]

REACTIONS (3)
  - VOMITING [None]
  - MIGRAINE [None]
  - NAUSEA [None]
